FAERS Safety Report 15648395 (Version 3)
Quarter: 2019Q1

REPORT INFORMATION
  Report Type: Spontaneous
  Country: US (occurrence: US)
  Receive Date: 20181122
  Receipt Date: 20190328
  Transmission Date: 20190417
  Serious: No
  Sender: FDA-Public Use
  Company Number: US-PFIZER INC-2018260333

PATIENT
  Age: 33 Year
  Sex: Female
  Weight: 117 kg

DRUGS (3)
  1. LYRICA CR [Suspect]
     Active Substance: PREGABALIN
     Indication: NEUROPATHY PERIPHERAL
  2. LYRICA CR [Suspect]
     Active Substance: PREGABALIN
     Indication: MULTIPLE SCLEROSIS
     Dosage: 165 MG, UNK
     Route: 048
  3. LYRICA CR [Suspect]
     Active Substance: PREGABALIN
     Indication: NERVE INJURY
     Dosage: 145 MG, UNK
     Route: 048

REACTIONS (1)
  - Burning sensation [Recovering/Resolving]

NARRATIVE: CASE EVENT DATE: 2018
